FAERS Safety Report 11415356 (Version 2)
Quarter: 2015Q3

REPORT INFORMATION
  Report Type: Report from Study
  Country: US (occurrence: US)
  Receive Date: 20150825
  Receipt Date: 20150828
  Transmission Date: 20151125
  Serious: No
  Sender: FDA-Public Use
  Company Number: US-AMGEN-USASL2015082868

PATIENT
  Age: 61 Year
  Sex: Female

DRUGS (1)
  1. ENBREL [Suspect]
     Active Substance: ETANERCEPT
     Indication: PRODUCT USED FOR UNKNOWN INDICATION
     Dosage: UNK UNK, UNK
     Route: 065

REACTIONS (10)
  - Nervousness [Unknown]
  - Injury [Unknown]
  - Road traffic accident [Unknown]
  - Blood pressure abnormal [Unknown]
  - Burning sensation [Unknown]
  - Malaise [Unknown]
  - Blood cholesterol abnormal [Unknown]
  - Fatigue [Unknown]
  - Muscle spasms [Unknown]
  - Drug dose omission [Unknown]
